FAERS Safety Report 11615030 (Version 2)
Quarter: 2017Q4

REPORT INFORMATION
  Report Type: Report from Study
  Country: PH (occurrence: PH)
  Receive Date: 20151009
  Receipt Date: 20171025
  Transmission Date: 20180320
  Serious: Yes (Other)
  Sender: FDA-Public Use
  Company Number: PH-009507513-1510PHL002401

PATIENT
  Sex: Female

DRUGS (1)
  1. JANUVIA [Suspect]
     Active Substance: SITAGLIPTIN PHOSPHATE
     Indication: DIABETES MELLITUS
     Dosage: 100 MG,QD
     Route: 048
     Dates: start: 201306, end: 201506

REACTIONS (4)
  - Breast cancer stage III [Unknown]
  - Blood glucose abnormal [Not Recovered/Not Resolved]
  - Hypertension [Recovered/Resolved with Sequelae]
  - Spinal laminectomy [Unknown]

NARRATIVE: CASE EVENT DATE: 2014
